FAERS Safety Report 10261617 (Version 2)
Quarter: 2014Q2

REPORT INFORMATION
  Report Type: Spontaneous
  Country: US (occurrence: US)
  Receive Date: 20140626
  Receipt Date: 20140626
  Transmission Date: 20141212
  Serious: No
  Sender: FDA-Public Use
  Company Number: US-MYLANLABS-2014S1010833

PATIENT
  Age: 84 Year
  Sex: Female
  Weight: 72.12 kg

DRUGS (5)
  1. ATORVASTATIN CALCIUM TABLETS [Suspect]
     Indication: BLOOD CHOLESTEROL INCREASED
     Route: 048
     Dates: start: 20140311, end: 201403
  2. SYNTHROID [Concomitant]
     Indication: THYROID DISORDER
     Route: 048
     Dates: start: 1979
  3. SPIRONOLACTONE [Concomitant]
     Route: 048
     Dates: start: 2008
  4. ECOTRIN [Concomitant]
     Route: 048
  5. METOPROLOL [Concomitant]
     Indication: CARDIAC DISORDER
     Route: 048

REACTIONS (2)
  - Malaise [Recovered/Resolved]
  - Muscle spasms [Recovered/Resolved]
